FAERS Safety Report 5708138-3 (Version None)
Quarter: 2008Q2

REPORT INFORMATION
  Report Type: 
  Country: None (occurrence: None)
  Receive Date: 20080417
  Receipt Date: 20080410
  Transmission Date: 20081010
  Serious: Yes (Other)
  Sender: FDA-Public Use
  Company Number: B0360357A

PATIENT
  Age: 31 Year
  Sex: Female

DRUGS (3)
  1. PAROXETINE HCL [Suspect]
     Indication: PANIC ATTACK
     Route: 065
     Dates: start: 19980929
  2. PAROXETINE HCL [Suspect]
     Dosage: 7.5ML PER DAY
     Route: 048
  3. CHLORPROMAZINE [Concomitant]
     Dates: start: 20050905

REACTIONS (17)
  - AGGRESSION [None]
  - AGITATION [None]
  - ANGER [None]
  - ANXIETY [None]
  - CLUMSINESS [None]
  - DELIVERY [None]
  - DISTURBANCE IN ATTENTION [None]
  - DIZZINESS [None]
  - DRUG WITHDRAWAL SYNDROME [None]
  - HYPERHIDROSIS [None]
  - NAUSEA [None]
  - NIGHTMARE [None]
  - OBSESSIVE-COMPULSIVE DISORDER [None]
  - SELF-INJURIOUS IDEATION [None]
  - SOMNOLENCE [None]
  - SPEECH DISORDER [None]
  - TINNITUS [None]
